FAERS Safety Report 25827661 (Version 1)
Quarter: 2025Q3

REPORT INFORMATION
  Report Type: Spontaneous
  Country: UA (occurrence: UA)
  Receive Date: 20250921
  Receipt Date: 20250921
  Transmission Date: 20251020
  Serious: Yes (Other)
  Sender: DEXCEL LTD.
  Company Number: UA-DEXPHARM-2025-4624

PATIENT
  Age: 34 Year
  Sex: Female

DRUGS (1)
  1. VENLAFAXINE HYDROCHLORIDE [Suspect]
     Active Substance: VENLAFAXINE HYDROCHLORIDE
     Dosage: ONE TABLET ONCE A DAY
     Route: 050
     Dates: start: 20250814

REACTIONS (2)
  - Urinary retention [Unknown]
  - Bladder spasm [Unknown]

NARRATIVE: CASE EVENT DATE: 20250821
